FAERS Safety Report 6737656-4 (Version None)
Quarter: 2010Q2

REPORT INFORMATION
  Report Type: 
  Country: None (occurrence: None)
  Receive Date: 20100524
  Receipt Date: 20100511
  Transmission Date: 20101027
  Serious: Yes (Other)
  Sender: FDA-Public Use
  Company Number: JP-ASTRAZENECA-2010SE23114

PATIENT
  Age: 61 Year
  Sex: Female

DRUGS (2)
  1. ECARD [Suspect]
     Indication: HYPERTENSION
     Dosage: 1 DF DAILY
     Route: 048
     Dates: start: 20090512, end: 20100330
  2. NORVASC [Concomitant]
     Indication: HYPERTENSION
     Route: 048
     Dates: start: 20100119

REACTIONS (2)
  - LUNG NEOPLASM MALIGNANT [None]
  - PHOTOSENSITIVITY REACTION [None]
